FAERS Safety Report 24398747 (Version 2)
Quarter: 2024Q4

REPORT INFORMATION
  Report Type: Spontaneous
  Country: FR (occurrence: FR)
  Receive Date: 20241004
  Receipt Date: 20241121
  Transmission Date: 20250115
  Serious: Yes (Life-Threatening, Other)
  Sender: MYLAN
  Company Number: FR-UCBSA-2024048390

PATIENT
  Age: 40 Year
  Sex: Female

DRUGS (12)
  1. DESLORATADINE [Suspect]
     Active Substance: DESLORATADINE
     Indication: Urticaria
     Dosage: UNK
     Route: 065
  2. EBASTINE [Suspect]
     Active Substance: EBASTINE
     Indication: Urticaria
     Dosage: UNK
     Route: 065
  3. HYDROXYZINE [Suspect]
     Active Substance: HYDROXYZINE HYDROCHLORIDE
     Indication: Urticaria
     Dosage: UNK
     Route: 065
  4. HYDROXYZINE [Suspect]
     Active Substance: HYDROXYZINE HYDROCHLORIDE
     Indication: Chronic spontaneous urticaria
  5. CETIRIZINE [Suspect]
     Active Substance: CETIRIZINE HYDROCHLORIDE
     Indication: Urticaria
     Dosage: UNK
     Route: 065
  6. CETIRIZINE [Suspect]
     Active Substance: CETIRIZINE HYDROCHLORIDE
     Indication: Chronic spontaneous urticaria
  7. LEVOCETIRIZINE [Suspect]
     Active Substance: LEVOCETIRIZINE
     Indication: Urticaria
     Dosage: UNK
     Route: 065
  8. FEXOFENADINE [Suspect]
     Active Substance: FEXOFENADINE HYDROCHLORIDE
     Indication: Chronic spontaneous urticaria
     Dosage: UNK
     Route: 065
  9. LORATADINE [Suspect]
     Active Substance: LORATADINE
     Indication: Chronic spontaneous urticaria
     Dosage: UNK
     Route: 065
  10. DEXCHLORPHENIRAMINE [Concomitant]
     Active Substance: DEXCHLORPHENIRAMINE
     Indication: Urticaria
     Dosage: UNK
     Route: 065
  11. DEXCHLORPHENIRAMINE [Concomitant]
     Active Substance: DEXCHLORPHENIRAMINE
     Indication: Chronic spontaneous urticaria
  12. MIZOLASTINE [Concomitant]
     Active Substance: MIZOLASTINE
     Indication: Chronic spontaneous urticaria
     Dosage: UNK
     Route: 065

REACTIONS (5)
  - Anaphylactic reaction [Unknown]
  - Angioedema [Unknown]
  - Urticaria [Unknown]
  - Dyspnoea [Unknown]
  - Off label use [Unknown]
